FAERS Safety Report 5233472-3 (Version None)
Quarter: 2007Q1

REPORT INFORMATION
  Report Type: 
  Country: None (occurrence: None)
  Receive Date: 20070208
  Receipt Date: 20070205
  Transmission Date: 20070707
  Serious: Yes (Other)
  Sender: FDA-Public Use
  Company Number: JP-BRISTOL-MYERS SQUIBB COMPANY-13115399

PATIENT
  Age: 66 Year
  Sex: Female
  Weight: 45 kg

DRUGS (1)
  1. AMPHOTERICIN B [Suspect]
     Indication: CRYPTOCOCCOSIS
     Dosage: INITIAL DOSE 10 MG/DAY, GRADUALLY INCREASED TO 0.8 MG/KG/DAY
     Route: 041
     Dates: start: 20030421, end: 20030624

REACTIONS (1)
  - NEPHROGENIC DIABETES INSIPIDUS [None]
